FAERS Safety Report 17940439 (Version 15)
Quarter: 2025Q2

REPORT INFORMATION
  Report Type: Report from Study
  Country: US (occurrence: US)
  Receive Date: 20200624
  Receipt Date: 20250409
  Transmission Date: 20250717
  Serious: Yes (Hospitalization, Other)
  Sender: TAKEDA
  Company Number: US-SHIRE-US202020556

PATIENT
  Age: 75 Year
  Sex: Female
  Weight: 100 kg

DRUGS (28)
  1. HUMAN IMMUNOGLOBULIN G [Suspect]
     Active Substance: HUMAN IMMUNOGLOBULIN G
     Indication: Immunodeficiency
     Dosage: 20 GRAM, Q2WEEKS
     Dates: start: 20200110
  2. HUMAN IMMUNOGLOBULIN G [Suspect]
     Active Substance: HUMAN IMMUNOGLOBULIN G
     Indication: Immune system disorder
     Dosage: 20 GRAM, Q2WEEKS
  3. ACETAMINOPHEN [Concomitant]
     Active Substance: ACETAMINOPHEN
  4. EPINEPHRINE [Concomitant]
     Active Substance: EPINEPHRINE
  5. OMEPRAZOLE [Concomitant]
     Active Substance: OMEPRAZOLE
  6. POTASSIUM CHLORIDE [Concomitant]
     Active Substance: POTASSIUM CHLORIDE
  7. TRELEGY ELLIPTA [Concomitant]
     Active Substance: FLUTICASONE FUROATE\UMECLIDINIUM BROMIDE\VILANTEROL TRIFENATATE
  8. ROSUVASTATIN CALCIUM [Concomitant]
     Active Substance: ROSUVASTATIN CALCIUM
  9. AMLODIPINE\VALSARTAN [Concomitant]
     Active Substance: AMLODIPINE\VALSARTAN
  10. LABETALOL HYDROCHLORIDE [Concomitant]
     Active Substance: LABETALOL HYDROCHLORIDE
  11. DIPHENHYDRAMINE HYDROCHLORIDE [Concomitant]
     Active Substance: DIPHENHYDRAMINE HYDROCHLORIDE
  12. Lmx [Concomitant]
  13. LEVOTHYROXINE SODIUM [Concomitant]
     Active Substance: LEVOTHYROXINE SODIUM
  14. DIPHENHYDRAMINE [Concomitant]
     Active Substance: DIPHENHYDRAMINE
  15. OXYCODONE HYDROCHLORIDE [Concomitant]
     Active Substance: OXYCODONE HYDROCHLORIDE
  16. PEPCID [Concomitant]
     Active Substance: FAMOTIDINE
  17. OXYCODONE [Concomitant]
     Active Substance: OXYCODONE
  18. ARIPIPRAZOLE [Concomitant]
     Active Substance: ARIPIPRAZOLE
  19. CRESTOR [Concomitant]
     Active Substance: ROSUVASTATIN CALCIUM
  20. CLONAZEPAM [Concomitant]
     Active Substance: CLONAZEPAM
  21. LABETALOL [Concomitant]
     Active Substance: LABETALOL
     Indication: Product used for unknown indication
  22. OXYCONTIN [Concomitant]
     Active Substance: OXYCODONE HYDROCHLORIDE
  23. LEVOXYL [Concomitant]
     Active Substance: LEVOTHYROXINE SODIUM
  24. KLONOPIN [Concomitant]
     Active Substance: CLONAZEPAM
  25. SYNTHROID [Concomitant]
     Active Substance: LEVOTHYROXINE SODIUM
  26. AMLODIPINE BESYLATE [Concomitant]
     Active Substance: AMLODIPINE BESYLATE
  27. ATORVASTATIN CALCIUM [Concomitant]
     Active Substance: ATORVASTATIN CALCIUM
  28. VALSARTAN [Concomitant]
     Active Substance: VALSARTAN

REACTIONS (19)
  - Gastrointestinal infection [Unknown]
  - Fall [Unknown]
  - Disability [Unknown]
  - Dyspnoea [Unknown]
  - Product dose omission issue [Unknown]
  - Infusion related reaction [Recovering/Resolving]
  - Wrist fracture [Unknown]
  - Joint swelling [Unknown]
  - Urinary tract infection [Unknown]
  - Product use issue [Unknown]
  - Insurance issue [Unknown]
  - Asthma [Unknown]
  - Body temperature increased [Unknown]
  - Abdominal discomfort [Unknown]
  - Balance disorder [Unknown]
  - Pain in extremity [Recovering/Resolving]
  - Back pain [Unknown]
  - Dizziness [Unknown]
  - Fatigue [Recovering/Resolving]

NARRATIVE: CASE EVENT DATE: 20241119
